FAERS Safety Report 5144687-7 (Version None)
Quarter: 2006Q4

REPORT INFORMATION
  Report Type: 
  Country: None (occurrence: None)
  Receive Date: 20061031
  Receipt Date: 20061011
  Transmission Date: 20070319
  Serious: Yes (Hospitalization)
  Sender: FDA-Public Use
  Company Number: 2006SP004757

PATIENT
  Age: 46 Year
  Sex: Female
  Weight: 92.0802 kg

DRUGS (7)
  1. PROVENTIL [Suspect]
     Indication: ASTHMA
     Dosage: 2 DF; Q6H; INH
     Route: 055
  2. THEOPHYLLINE [Concomitant]
  3. SEREVENT [Concomitant]
  4. ZYRTEC [Concomitant]
  5. PREDNISONE TAB [Concomitant]
  6. SINGULAIR [Concomitant]
  7. EPINEPHRINE [Concomitant]

REACTIONS (2)
  - DRUG INEFFECTIVE [None]
  - PHARMACEUTICAL PRODUCT COMPLAINT [None]
